FAERS Safety Report 11544531 (Version 12)
Quarter: 2019Q2

REPORT INFORMATION
  Report Type: Report from Study
  Country: CA (occurrence: CA)
  Receive Date: 20150924
  Receipt Date: 20190402
  Transmission Date: 20190711
  Serious: Yes (Other)
  Sender: FDA-Public Use
  Company Number: CA-ROCHE-1613936

PATIENT
  Age: 67 Year
  Sex: Female
  Weight: 77.1 kg

DRUGS (18)
  1. MELATONIN [Concomitant]
     Active Substance: MELATONIN
  2. SYNTHROID [Concomitant]
     Active Substance: LEVOTHYROXINE SODIUM
  3. PARIET [Concomitant]
     Active Substance: RABEPRAZOLE SODIUM
  4. CELEBREX [Concomitant]
     Active Substance: CELECOXIB
  5. ACTONEL [Concomitant]
     Active Substance: RISEDRONATE SODIUM
  6. METHOTREXATE. [Concomitant]
     Active Substance: METHOTREXATE
     Dosage: REDUCED DOSE
     Route: 065
  7. PREMARIN [Concomitant]
     Active Substance: ESTROGENS, CONJUGATED
     Dosage: SL
     Route: 065
  8. AMITRIPTYLINE [Concomitant]
     Active Substance: AMITRIPTYLINE
  9. ACTEMRA [Suspect]
     Active Substance: TOCILIZUMAB
     Indication: TEMPORAL ARTERITIS
     Route: 042
     Dates: start: 20161122, end: 20180703
  10. ACTEMRA [Suspect]
     Active Substance: TOCILIZUMAB
     Indication: TEMPORAL ARTERITIS
     Route: 042
     Dates: start: 20150618, end: 20180802
  11. ASA [Concomitant]
     Active Substance: ASPIRIN
  12. ACTEMRA [Suspect]
     Active Substance: TOCILIZUMAB
     Indication: TEMPORAL ARTERITIS
     Route: 058
     Dates: start: 20180828
  13. VITAMIN B12 [Concomitant]
     Active Substance: CYANOCOBALAMIN
  14. FOLIC ACID. [Concomitant]
     Active Substance: FOLIC ACID
  15. RABEPRAZOLE [Concomitant]
     Active Substance: RABEPRAZOLE
  16. LASIX [Concomitant]
     Active Substance: FUROSEMIDE
  17. PREDNISONE. [Concomitant]
     Active Substance: PREDNISONE
     Dosage: REDUCED DOSE
     Route: 048
  18. TRAMACET [Concomitant]
     Active Substance: ACETAMINOPHEN\TRAMADOL

REACTIONS (15)
  - Therapy partial responder [Unknown]
  - Alopecia [Not Recovered/Not Resolved]
  - Peripheral swelling [Not Recovered/Not Resolved]
  - Arthralgia [Not Recovered/Not Resolved]
  - Therapy non-responder [Unknown]
  - Weight decreased [Not Recovered/Not Resolved]
  - Skin ulcer [Not Recovered/Not Resolved]
  - Fall [Unknown]
  - Erythema [Not Recovered/Not Resolved]
  - Joint swelling [Not Recovered/Not Resolved]
  - Swelling [Not Recovered/Not Resolved]
  - Skin disorder [Not Recovered/Not Resolved]
  - Headache [Not Recovered/Not Resolved]
  - Contusion [Not Recovered/Not Resolved]
  - Drug ineffective [Unknown]

NARRATIVE: CASE EVENT DATE: 20160519
